FAERS Safety Report 7228925-2 (Version None)
Quarter: 2011Q1

REPORT INFORMATION
  Report Type: 
  Country: None (occurrence: None)
  Receive Date: 20110117
  Receipt Date: 20110111
  Transmission Date: 20110831
  Serious: Yes (Hospitalization)
  Sender: FDA-Public Use
  Company Number: JP-SANOFI-AVENTIS-2010SA074880

PATIENT
  Age: 58 Year
  Sex: Male
  Weight: 70 kg

DRUGS (3)
  1. ARAVA [Suspect]
     Route: 048
     Dates: start: 20100326, end: 20100402
  2. ARAVA [Suspect]
     Indication: RHEUMATOID ARTHRITIS
     Route: 048
     Dates: start: 20100323, end: 20100325
  3. MOBIC [Concomitant]
     Indication: RHEUMATOID ARTHRITIS
     Route: 048
     Dates: end: 20100402

REACTIONS (1)
  - CEREBRAL INFARCTION [None]
